FAERS Safety Report 8582012-X (Version None)
Quarter: 2012Q3

REPORT INFORMATION
  Report Type: 
  Country: None (occurrence: None)
  Receive Date: 20120809
  Receipt Date: 20120807
  Transmission Date: 20120928
  Serious: Yes (Hospitalization, Other)
  Sender: FDA-Public Use
  Company Number: US-PFIZER INC-2012148141

PATIENT
  Age: 48 Year
  Sex: Female
  Weight: 88.4 kg

DRUGS (3)
  1. XANAX [Suspect]
     Indication: ANXIETY
     Dosage: 0.25 MG, AS NEEDED NO MORE THAN TWO TIMES A DAY
     Dates: start: 20110601
  2. EFFEXOR [Suspect]
     Indication: DEPRESSION
  3. EFFEXOR [Suspect]
     Indication: ANXIETY
     Dosage: 50 MG, DAILY
     Dates: start: 20120501, end: 20120501

REACTIONS (5)
  - HYPERTENSION [None]
  - RIB FRACTURE [None]
  - NERVOUSNESS [None]
  - ACCIDENT [None]
  - FEELING ABNORMAL [None]
